FAERS Safety Report 9483306 (Version 1)
Quarter: 2013Q3

REPORT INFORMATION
  Report Type: Spontaneous
  Country: US (occurrence: US)
  Receive Date: 20130828
  Receipt Date: 20130828
  Transmission Date: 20140515
  Serious: Yes (Hospitalization)
  Sender: FDA-Public Use
  Company Number: US-AMGEN-KDL253448

PATIENT
  Age: 39 Year
  Sex: Female

DRUGS (2)
  1. ENBREL [Suspect]
     Indication: RHEUMATOID ARTHRITIS
     Dosage: 50 MG, QWK
     Route: 058
     Dates: start: 199911
  2. METHOTREXATE [Concomitant]
     Dosage: 25 MG, QWK
     Dates: start: 200608

REACTIONS (8)
  - Arthropathy [Unknown]
  - Femur fracture [Unknown]
  - Medical device removal [Recovered/Resolved]
  - Skin ulcer [Unknown]
  - Pseudomonas infection [Recovered/Resolved]
  - Wound drainage [Unknown]
  - Device dislocation [Unknown]
  - Rheumatoid arthritis [Not Recovered/Not Resolved]
